FAERS Safety Report 15933790 (Version 5)
Quarter: 2019Q2

REPORT INFORMATION
  Report Type: Report from Study
  Country: None (occurrence: CH)
  Receive Date: 20190207
  Receipt Date: 20190404
  Transmission Date: 20190711
  Serious: Yes (Hospitalization)
  Sender: FDA-Public Use
  Company Number: CH-ABBVIE-18K-151-2371628-00

PATIENT
  Age: 79 Year
  Sex: Female
  Weight: 56 kg

DRUGS (14)
  1. DUODOPA [Suspect]
     Active Substance: CARBIDOPA\LEVODOPA
     Route: 050
     Dates: start: 20180413, end: 20180425
  2. DUODOPA [Suspect]
     Active Substance: CARBIDOPA\LEVODOPA
     Indication: PARKINSON^S DISEASE
     Route: 050
     Dates: start: 20180411, end: 20180413
  3. DUODOPA [Suspect]
     Active Substance: CARBIDOPA\LEVODOPA
     Dosage: 16H THERAPY,  MD 5.5ML CR DAY 2.4ML/H ED 2ML
     Route: 050
     Dates: start: 20180425, end: 20180518
  4. DUODOPA [Suspect]
     Active Substance: CARBIDOPA\LEVODOPA
     Dosage: MD 5ML, CRD 2.6ML/H,ED 1.5ML. LONG TIME NEEDED 3 ED DAILY (10AM, 2PM, 5PM),16 H THERAPY
     Route: 050
     Dates: start: 20181130, end: 20190112
  5. DUODOPA [Suspect]
     Active Substance: CARBIDOPA\LEVODOPA
     Dosage: 16 H THERAPY, MD: 5 ML, CR DAY: 2.6 ML/H, ED:1.5 ML
     Route: 050
     Dates: start: 20190112, end: 201901
  6. DUODOPA [Suspect]
     Active Substance: CARBIDOPA\LEVODOPA
     Dosage: 16 H THERAPY, MD: 5 ML, CD DAY: 2.6 ML/H, ED:2 ML
     Route: 050
     Dates: start: 20190112, end: 20190114
  7. DUODOPA [Suspect]
     Active Substance: CARBIDOPA\LEVODOPA
     Dosage: 16H THERAPY MD 5ML CR DAY 2.6ML/H ED 2ML
     Route: 050
     Dates: start: 20180613, end: 201806
  8. DUODOPA [Suspect]
     Active Substance: CARBIDOPA\LEVODOPA
     Dosage: MD 5ML,CR DAY 2.6ML/H, ED 2ML
     Route: 050
     Dates: start: 20180718, end: 20180822
  9. DUODOPA [Suspect]
     Active Substance: CARBIDOPA\LEVODOPA
     Dosage: 16H THERAPY, MD 5ML, CR DAY 2.5ML/H, ED 2ML
     Route: 050
     Dates: start: 20180518, end: 20180613
  10. DUODOPA [Suspect]
     Active Substance: CARBIDOPA\LEVODOPA
     Dosage: MD 5ML, CR 2.8ML/H, ED2ML
     Route: 050
     Dates: start: 20180822, end: 20181102
  11. DUODOPA [Suspect]
     Active Substance: CARBIDOPA\LEVODOPA
     Dosage: MD 5ML, CRD 2.6ML/H, ED2ML?DOSAGE DECREASED
     Route: 050
     Dates: start: 20181102, end: 20181130
  12. DUODOPA [Suspect]
     Active Substance: CARBIDOPA\LEVODOPA
     Dosage: MD: 5 ML, CD DAY: 2.6 ML/H, ED: 1.5 ML, 16 H THERAPY, 1 CASSETTE PER DAY
     Route: 050
     Dates: start: 20190114
  13. MADOPAR [Concomitant]
     Active Substance: BENSERAZIDE HYDROCHLORIDE\LEVODOPA
     Indication: PRODUCT USED FOR UNKNOWN INDICATION
     Dosage: AT 10 PM
  14. DUODOPA [Suspect]
     Active Substance: CARBIDOPA\LEVODOPA
     Dosage: MD 5ML CR DAY 2.6ML/H ED 2ML
     Route: 050
     Dates: start: 2018, end: 20180718

REACTIONS (25)
  - Therapeutic product effect decreased [Not Recovered/Not Resolved]
  - Device deployment issue [Recovered/Resolved]
  - Akinesia [Not Recovered/Not Resolved]
  - Hyperkinesia [Unknown]
  - Gait inability [Recovering/Resolving]
  - Feeling abnormal [Recovering/Resolving]
  - Freezing phenomenon [Not Recovered/Not Resolved]
  - Dyskinesia [Not Recovered/Not Resolved]
  - Psychiatric symptom [Unknown]
  - Product dose omission [Recovered/Resolved]
  - Anxiety [Not Recovered/Not Resolved]
  - Dyskinesia [Recovering/Resolving]
  - Tremor [Not Recovered/Not Resolved]
  - Dementia [Unknown]
  - Parkinson^s disease [Recovered/Resolved]
  - Fear [Unknown]
  - Drug ineffective [Unknown]
  - Psychiatric symptom [Unknown]
  - On and off phenomenon [Unknown]
  - Off label use [Recovered/Resolved]
  - Intentional product misuse [Unknown]
  - Device issue [Recovered/Resolved]
  - Patient dissatisfaction with treatment [Unknown]
  - Device occlusion [Recovered/Resolved]
  - Stoma complication [Recovered/Resolved]

NARRATIVE: CASE EVENT DATE: 2018
